FAERS Safety Report 11221569 (Version 3)
Quarter: 2017Q3

REPORT INFORMATION
  Report Type: Spontaneous
  Country: ES (occurrence: ES)
  Receive Date: 20150626
  Receipt Date: 20170807
  Transmission Date: 20171127
  Serious: Yes (Death, Hospitalization)
  Sender: FDA-Public Use
  Company Number: ES-UNITED THERAPEUTICS-UNT-2015-007342

PATIENT
  Age: 3 Year
  Sex: Female
  Weight: 13.6 kg

DRUGS (8)
  1. GM-CSF [Suspect]
     Active Substance: GRANULOCYTE-MACROPHAGE COLONY-STIMULATING FACTOR
     Indication: NEUROBLASTOMA
     Dosage: UNK
     Route: 065
  2. INTERLEUKINA 2 ASPEN [Suspect]
     Active Substance: ALDESLEUKIN
     Dosage: COURSE 2, 7.8 MILLION IU (MUI)
     Route: 065
     Dates: start: 20150602, end: 20150604
  3. METHYLPREDNISOLONE. [Concomitant]
     Active Substance: METHYLPREDNISOLONE
     Dosage: 27.2 MG, TOTAL DAILY DOSAGE
     Route: 065
     Dates: start: 201506
  4. INTERLEUKINA 2 ASPEN [Suspect]
     Active Substance: ALDESLEUKIN
     Indication: NEUROBLASTOMA
     Dosage: COURSE 1, 6.96 MILLION IU (MUI)
     Route: 065
     Dates: start: 20150526, end: 20150529
  5. ISOTRETINOIN [Suspect]
     Active Substance: ISOTRETINOIN
     Indication: NEUROBLASTOMA
     Dosage: UNK
     Route: 065
  6. METHYLPREDNISOLONE. [Concomitant]
     Active Substance: METHYLPREDNISOLONE
     Dosage: UNK
     Route: 065
     Dates: start: 2015
  7. UNITUXIN [Suspect]
     Active Substance: DINUTUXIMAB
     Indication: NEUROBLASTOMA
     Dosage: 40 MG, EACH CYCLE
     Route: 041
     Dates: start: 20150504
  8. METHYLPREDNISOLONE. [Concomitant]
     Active Substance: METHYLPREDNISOLONE
     Indication: MYELITIS
     Dosage: 400 MG, TOTAL DAILY DOSAGE
     Route: 065
     Dates: start: 20150612, end: 20150616

REACTIONS (2)
  - Neuroblastoma recurrent [Fatal]
  - Myelitis transverse [Recovered/Resolved]

NARRATIVE: CASE EVENT DATE: 20150605
